FAERS Safety Report 7495897-5 (Version None)
Quarter: 2011Q2

REPORT INFORMATION
  Report Type: 
  Country: None (occurrence: None)
  Receive Date: 20110523
  Receipt Date: 20110511
  Transmission Date: 20111010
  Serious: Yes (Other)
  Sender: FDA-Public Use
  Company Number: ES-BRISTOL-MYERS SQUIBB COMPANY-15661713

PATIENT
  Age: 27 Year
  Sex: Female

DRUGS (2)
  1. METFORMIN HCL [Suspect]
     Indication: INFERTILITY
  2. METFORMIN HCL [Suspect]
     Indication: POLYCYSTIC OVARIES

REACTIONS (3)
  - CERVICAL INCOMPETENCE [None]
  - MULTIPLE PREGNANCY [None]
  - OFF LABEL USE [None]
